FAERS Safety Report 14288397 (Version 1)
Quarter: 2017Q4

REPORT INFORMATION
  Report Type: Spontaneous
  Country: NL (occurrence: NL)
  Receive Date: 20171215
  Receipt Date: 20171215
  Transmission Date: 20180321
  Serious: Yes (Death, Other)
  Sender: FDA-Public Use
  Company Number: NL-009507513-1712NLD007213

PATIENT
  Sex: Female
  Weight: 3.65 kg

DRUGS (2)
  1. PREGNYL [Suspect]
     Active Substance: CHORIOGONADOTROPIN ALFA
     Dosage: STRENGTH 5000 IE
     Route: 064
     Dates: start: 2005
  2. PREGNYL [Suspect]
     Active Substance: CHORIOGONADOTROPIN ALFA
     Dosage: STRENGTH 5000 IE
     Route: 064
     Dates: start: 2005

REACTIONS (7)
  - Hydrocephalus [Unknown]
  - Heterotaxia [Unknown]
  - Congenital pulmonary valve atresia [Unknown]
  - Foetal exposure during pregnancy [Recovered/Resolved]
  - Death [Fatal]
  - Atrial septal defect [Unknown]
  - Atrioventricular septal defect [Unknown]

NARRATIVE: CASE EVENT DATE: 2005
